FAERS Safety Report 7810369-3 (Version None)
Quarter: 2011Q4

REPORT INFORMATION
  Report Type: 
  Country: None (occurrence: None)
  Receive Date: 20111012
  Receipt Date: 20110927
  Transmission Date: 20120403
  Serious: Yes (Disabling)
  Sender: FDA-Public Use
  Company Number: US-ROCHE-799803

PATIENT
  Sex: Male
  Weight: 76.726 kg

DRUGS (1)
  1. AVASTIN [Suspect]
     Indication: LUNG CARCINOMA CELL TYPE UNSPECIFIED STAGE III
     Route: 065

REACTIONS (1)
  - EROSIVE OESOPHAGITIS [None]
